FAERS Safety Report 5566244-0 (Version None)
Quarter: 2007Q4

REPORT INFORMATION
  Report Type: 
  Country: None (occurrence: None)
  Receive Date: 20071213
  Receipt Date: 20071213
  Transmission Date: 20080405
  Serious: Yes (Hospitalization)
  Sender: FDA-Public Use
  Company Number: None

PATIENT
  Age: 72 Year
  Sex: Male

DRUGS (4)
  1. ENOXAPARIN SODIUM [Suspect]
     Indication: DEEP VEIN THROMBOSIS
     Dosage: 30MG BID SQ
     Route: 058
     Dates: start: 20070930, end: 20071003
  2. ENOXAPARIN SODIUM [Suspect]
     Indication: PROPHYLAXIS
     Dosage: 30MG BID SQ
     Route: 058
     Dates: start: 20070930, end: 20071003
  3. HEPARIN [Suspect]
     Indication: DEEP VEIN THROMBOSIS
     Dosage: 5000UNITS TID SQ
     Route: 058
     Dates: start: 20070919, end: 20070929
  4. HEPARIN [Suspect]
     Indication: PROPHYLAXIS
     Dosage: 5000UNITS TID SQ
     Route: 058
     Dates: start: 20070919, end: 20070929

REACTIONS (1)
  - THROMBOCYTOPENIA [None]
